FAERS Safety Report 12539753 (Version 1)
Quarter: 2016Q3

REPORT INFORMATION
  Report Type: Spontaneous
  Country: US (occurrence: None)
  Receive Date: 20160707
  Receipt Date: 20160707
  Transmission Date: 20161109
  Serious: Yes (Other)
  Sender: FDA-Public Use
  Company Number: None

PATIENT
  Age: 28 Year
  Sex: Female
  Weight: 52.62 kg

DRUGS (2)
  1. DOXYCYCLINE, 100MG VIAL FRESENIUS KABI USA [Suspect]
     Active Substance: DOXYCYCLINE
     Indication: LYME DISEASE
     Dosage: DOXYCYCLINE?400 MG TUES THRU FRI?INTRAVENOUS (NOT OTHERWISE SPECIFIED)
     Route: 042
     Dates: start: 20160510, end: 20160629
  2. CEFOTAXIME [Concomitant]
     Active Substance: CEFOTAXIME SODIUM

REACTIONS (3)
  - Erythema [None]
  - Paraesthesia [None]
  - Blister [None]

NARRATIVE: CASE EVENT DATE: 20160604
